FAERS Safety Report 9293668 (Version 4)
Quarter: 2014Q1

REPORT INFORMATION
  Report Type: Report from Study
  Country: JP (occurrence: JP)
  Receive Date: 20130516
  Receipt Date: 20140310
  Transmission Date: 20141002
  Serious: Yes (Life-Threatening, Hospitalization)
  Sender: FDA-Public Use
  Company Number: JP-JNJFOC-20130506032

PATIENT
  Age: 82 Year
  Sex: Female
  Weight: 52 kg

DRUGS (20)
  1. GOLIMUMAB [Suspect]
     Indication: RHEUMATOID ARTHRITIS
     Route: 058
     Dates: start: 20120904, end: 20130129
  2. TRAMACET [Suspect]
     Indication: RHEUMATOID ARTHRITIS
     Route: 048
     Dates: start: 20130301
  3. TRAMACET [Suspect]
     Indication: RHEUMATOID ARTHRITIS
     Route: 048
     Dates: start: 20120417, end: 20130225
  4. PREDNISOLONE [Suspect]
     Indication: RHEUMATOID ARTHRITIS
     Route: 048
     Dates: start: 20130301
  5. PREDNISOLONE [Suspect]
     Indication: RHEUMATOID ARTHRITIS
     Route: 048
     Dates: start: 20120904, end: 20130225
  6. METHOTREXATE [Suspect]
     Indication: RHEUMATOID ARTHRITIS
     Route: 065
  7. BENET [Concomitant]
     Indication: OSTEOPOROSIS
     Route: 048
  8. CALCIUM [Concomitant]
     Indication: PROPHYLAXIS
     Route: 048
  9. CRESTOR [Concomitant]
     Indication: HYPERCHOLESTEROLAEMIA
     Route: 048
  10. OMEPRAZOLE [Concomitant]
  11. GASTROM [Concomitant]
     Route: 048
  12. OPALMON [Concomitant]
     Route: 048
  13. FOLIC ACID [Concomitant]
     Route: 048
  14. ISODINE [Concomitant]
     Indication: STOMATITIS
  15. RINDERON-V [Concomitant]
     Indication: ECZEMA
     Route: 061
  16. DYDRENE [Concomitant]
     Indication: ANGINA PECTORIS
     Route: 062
  17. NEXIUM [Concomitant]
     Route: 048
  18. EDIROL [Concomitant]
     Route: 048
  19. ALL OTHER THERAPEUTIC PRODUCTS [Concomitant]
     Route: 048
  20. DOMPERIDONE [Concomitant]
     Route: 048

REACTIONS (1)
  - Bronchopneumonia [Recovered/Resolved]
